FAERS Safety Report 5327548-X (Version None)
Quarter: 2007Q2

REPORT INFORMATION
  Report Type: 
  Country: None (occurrence: None)
  Receive Date: 20070517
  Receipt Date: 20070201
  Transmission Date: 20071010
  Serious: Yes (Hospitalization)
  Sender: FDA-Public Use
  Company Number: US-JNJFOC-20070104353

PATIENT
  Age: 36 Year
  Sex: Male

DRUGS (3)
  1. TRAMADOL HCL [Suspect]
     Indication: SUICIDE ATTEMPT
     Route: 048
  2. HEPARIN [Concomitant]
     Indication: PULMONARY EMBOLISM
     Route: 065
  3. HEPARIN [Concomitant]
     Indication: DEEP VEIN THROMBOSIS
     Route: 065

REACTIONS (4)
  - INTENTIONAL OVERDOSE [None]
  - INTUBATION [None]
  - SOMNOLENCE [None]
  - SUICIDE ATTEMPT [None]
